FAERS Safety Report 5754894-8 (Version None)
Quarter: 2008Q2

REPORT INFORMATION
  Report Type: 
  Country: None (occurrence: None)
  Receive Date: 20080527
  Receipt Date: 20080516
  Transmission Date: 20081010
  Serious: Yes (Hospitalization)
  Sender: FDA-Public Use
  Company Number: 2008SP009276

PATIENT
  Age: 49 Year
  Sex: Female

DRUGS (2)
  1. PEG-INTRON [Suspect]
     Indication: HEPATITIS C
     Dosage: SC
     Route: 058
     Dates: start: 20070405, end: 20071101
  2. RIBAVIRIN [Suspect]
     Indication: HEPATITIS C
     Dosage: PO
     Route: 048
     Dates: start: 20070405, end: 20071101

REACTIONS (8)
  - ALOPECIA [None]
  - ANOREXIA [None]
  - ASTHENIA [None]
  - CONTUSION [None]
  - HAEMOPHILIA [None]
  - HAEMORRHAGE [None]
  - IMPAIRED HEALING [None]
  - MIGRAINE [None]
